FAERS Safety Report 17589030 (Version 1)
Quarter: 2020Q1

REPORT INFORMATION
  Report Type: Spontaneous
  Country: CA (occurrence: CA)
  Receive Date: 20200327
  Receipt Date: 20200327
  Transmission Date: 20200409
  Serious: Yes (Hospitalization)
  Sender: FDA-Public Use
  Company Number: CA-B.I. PHARMACEUTICALS,INC./RIDGEFIELD-2020-BI-015904

PATIENT
  Age: 57 Year
  Sex: Male

DRUGS (10)
  1. ATROVENT [Suspect]
     Active Substance: IPRATROPIUM BROMIDE
     Indication: PRODUCT USED FOR UNKNOWN INDICATION
     Route: 065
  2. DEXILANT [Concomitant]
     Active Substance: DEXLANSOPRAZOLE
     Indication: GASTROOESOPHAGEAL REFLUX DISEASE
     Dosage: CAPSULE, DELAYED?RELEASE
     Route: 065
  3. REACTINE [CETIRIZINE HYDROCHLORIDE;PSEUDOEPHEDRINE HYDROCHLORIDE] [Concomitant]
     Active Substance: CETIRIZINE HYDROCHLORIDE\PSEUDOEPHEDRINE HYDROCHLORIDE
     Indication: PRODUCT USED FOR UNKNOWN INDICATION
     Route: 065
  4. PREDNISONE. [Suspect]
     Active Substance: PREDNISONE
     Indication: PRODUCT USED FOR UNKNOWN INDICATION
     Route: 065
  5. SALBUTAMOL [Suspect]
     Active Substance: ALBUTEROL
     Indication: PRODUCT USED FOR UNKNOWN INDICATION
     Route: 055
  6. FLUTICASONE FUROATE;VILANTEROL TRIFENATATE [Suspect]
     Active Substance: FLUTICASONE FUROATE\VILANTEROL TRIFENATATE
     Indication: PRODUCT USED FOR UNKNOWN INDICATION
     Route: 065
  7. SINGULAIR [Suspect]
     Active Substance: MONTELUKAST SODIUM
     Indication: PRODUCT USED FOR UNKNOWN INDICATION
     Route: 065
  8. UMECLIDINIUM BROMIDE [Suspect]
     Active Substance: UMECLIDINIUM BROMIDE
     Indication: PRODUCT USED FOR UNKNOWN INDICATION
     Route: 065
  9. AVAMYS [Concomitant]
     Active Substance: FLUTICASONE FUROATE
     Indication: PRODUCT USED FOR UNKNOWN INDICATION
     Dosage: SPRAY METERED DOSE
     Route: 045
  10. PULMICORT TURBUHALER [Concomitant]
     Active Substance: BUDESONIDE
     Indication: PRODUCT USED FOR UNKNOWN INDICATION
     Route: 065

REACTIONS (10)
  - Asthma [Unknown]
  - Atelectasis [Unknown]
  - Blood count abnormal [Unknown]
  - Blood pressure diastolic increased [Unknown]
  - Cough [Unknown]
  - Gastrooesophageal reflux disease [Unknown]
  - Nasal congestion [Unknown]
  - Wheezing [Unknown]
  - Productive cough [Unknown]
  - Viral upper respiratory tract infection [Unknown]
